FAERS Safety Report 7017918-6 (Version None)
Quarter: 2010Q3

REPORT INFORMATION
  Report Type: 
  Country: None (occurrence: None)
  Receive Date: 20100909
  Receipt Date: 20100608
  Transmission Date: 20110219
  Serious: No
  Sender: FDA-Public Use
  Company Number: 2010SP032283

PATIENT
  Sex: Female

DRUGS (3)
  1. SAPHRIS [Suspect]
     Indication: PRODUCT USED FOR UNKNOWN INDICATION
     Dosage: 5 MG; BID; SL
     Route: 060
  2. LORAZEPAM (CON.) [Concomitant]
  3. TEMAZEPAM (CON.) [Concomitant]

REACTIONS (1)
  - PRURITUS [None]
